FAERS Safety Report 4747800-6 (Version None)
Quarter: 2005Q3

REPORT INFORMATION
  Report Type: 
  Country: None (occurrence: None)
  Receive Date: 20050818
  Receipt Date: 20050802
  Transmission Date: 20060218
  Serious: Yes (Hospitalization)
  Sender: FDA-Public Use
  Company Number: 2005SE04450

PATIENT
  Age: 29310 Day
  Sex: Male

DRUGS (2)
  1. BLOPRESS [Suspect]
     Indication: HYPERTENSION
     Route: 048
     Dates: start: 20020430, end: 20050719
  2. BLOPRESS [Suspect]
     Route: 048
     Dates: start: 20050720

REACTIONS (1)
  - DEPRESSED LEVEL OF CONSCIOUSNESS [None]
